FAERS Safety Report 8935332 (Version 1)
Quarter: 2012Q4

REPORT INFORMATION
  Report Type: 
  Country: GB (occurrence: GB)
  Receive Date: 20121129
  Receipt Date: 20121129
  Transmission Date: 20130627
  Serious: Yes (Other)
  Sender: FDA-Public Use
  Company Number: GB-PFIZER INC-2012298836

PATIENT

DRUGS (1)
  1. CHAMPIX [Suspect]
     Dosage: UNK
     Route: 064

REACTIONS (2)
  - Maternal exposure timing unspecified [Unknown]
  - Dysmorphism [Unknown]
